FAERS Safety Report 8309423-1 (Version None)
Quarter: 2012Q2

REPORT INFORMATION
  Report Type: 
  Country: None (occurrence: None)
  Receive Date: 20120420
  Receipt Date: 20120412
  Transmission Date: 20120825
  Serious: Yes (Hospitalization)
  Sender: FDA-Public Use
  Company Number: 2012HGS-003503

PATIENT
  Age: 33 Year
  Sex: Female
  Weight: 85.2762 kg

DRUGS (18)
  1. BACLOFEN [Concomitant]
  2. AMBIEN [Concomitant]
  3. CENTRUM COMPLETE (CENTRUM) (ASCORBIC ACID, TOCOPHERYL ACETATE, FOLIC A [Concomitant]
  4. LAMICTAL [Concomitant]
  5. LYRICA [Concomitant]
  6. BENLYSTA [Suspect]
     Dosage: 1 IN 28 D, INTRAVENOUS DRIP
     Route: 041
     Dates: start: 20111201
  7. HYDROXYCHLOROQUINE (HYDROXYCHLOROQUINE SULFATE) (HYDROXYCHLOROQUINE SU [Concomitant]
  8. PREDNISONE [Concomitant]
  9. INTUNIV ER (GUANFACINE HYDROCHLORIDE) (GUANFACINE HYDROCHLORIDE) [Concomitant]
  10. EVOXAC [Concomitant]
  11. PIROXICAM (PIROXICAM) (PIROXICAM) [Concomitant]
  12. PHENERGAN (PROMETHAZINE) (PROMETHAZINE) [Concomitant]
  13. LEFLUNOMIDE [Concomitant]
  14. HYDROCODONE (HYDROCODONE BITARTRATE) (HYDROCODONE BITARTRATE) [Concomitant]
  15. XANAX [Concomitant]
  16. VERAPAMIL ER (VERAPAMIL) (VERAPAMIL) [Concomitant]
  17. VITAMIN B12 (CYANOCOBALAMIN) (CYANOCOBALAMIN) [Concomitant]
  18. VITAMIN B1 (THIAMINE HYDROCHLORIDE) (THIAMINE HYDROCHLORIDE) [Concomitant]

REACTIONS (21)
  - TENDERNESS [None]
  - URTICARIA [None]
  - PANIC ATTACK [None]
  - TREMOR [None]
  - DIARRHOEA [None]
  - MUSCLE TWITCHING [None]
  - HYPOAESTHESIA [None]
  - ANXIETY [None]
  - AMNESIA [None]
  - CONDITION AGGRAVATED [None]
  - CHEST DISCOMFORT [None]
  - GENERALISED ERYTHEMA [None]
  - RHINORRHOEA [None]
  - PALLOR [None]
  - MUSCLE SPASMS [None]
  - PAIN [None]
  - OEDEMA PERIPHERAL [None]
  - CHEST PAIN [None]
  - ABDOMINAL PAIN [None]
  - POLLAKIURIA [None]
  - VOMITING PROJECTILE [None]
